FAERS Safety Report 5442106-4 (Version None)
Quarter: 2007Q3

REPORT INFORMATION
  Report Type: 
  Country: None (occurrence: None)
  Receive Date: 20070904
  Receipt Date: 20070824
  Transmission Date: 20080115
  Serious: Yes (Hospitalization)
  Sender: FDA-Public Use
  Company Number: JP-ROCHE-514108

PATIENT

DRUGS (1)
  1. ROCEPHIN [Suspect]
     Indication: INFECTION PROPHYLAXIS
     Route: 041

REACTIONS (1)
  - CHOLELITHIASIS [None]
